FAERS Safety Report 5781383-7 (Version None)
Quarter: 2008Q2

REPORT INFORMATION
  Report Type: 
  Country: None (occurrence: None)
  Receive Date: 20080619
  Receipt Date: 20080610
  Transmission Date: 20081010
  Serious: Yes (Hospitalization, Other)
  Sender: FDA-Public Use
  Company Number: 163-21880-08040028

PATIENT
  Age: 73 Year
  Sex: Female
  Weight: 66.9509 kg

DRUGS (23)
  1. REVLIMID [Suspect]
     Indication: MYELODYSPLASTIC SYNDROME
     Dosage: 10 MG, 1 IN 1 D, ORAL
     Route: 048
     Dates: start: 20080310, end: 20080401
  2. TARCEVA [Suspect]
     Indication: LUNG NEOPLASM MALIGNANT
  3. CIPRO [Concomitant]
  4. MEGACE [Concomitant]
  5. CARBOPLATIN [Concomitant]
  6. PACLITAXEL [Concomitant]
  7. PREDNISONE TAB [Concomitant]
  8. LASIX [Concomitant]
  9. DIGOXIN [Concomitant]
  10. ACETAMINOPHEN (CODEINE (GALENIC/PARACETOMOL/CODEINE) [Concomitant]
  11. CEPHALEXIN [Concomitant]
  12. VIGAMOX [Concomitant]
  13. TOBRAMYCIN - DEXAMETHASONE (TOBRADEX) [Concomitant]
  14. ISOPTO  HYOSCINE (HYOSCINE HYDROBROMIDE) [Concomitant]
  15. ASPIRIN [Concomitant]
  16. RYTHMOL SR (PROPAFENONE) [Concomitant]
  17. ISOSORBIDE DINITRATE [Concomitant]
  18. SPIRONOLACTONE [Concomitant]
  19. PRAVACHOL [Concomitant]
  20. METOPROLOL SUCCINATE [Concomitant]
  21. ARANESP [Concomitant]
  22. TOPROL-XL [Concomitant]
  23. PREDNISOLONE ACETATE [Concomitant]

REACTIONS (25)
  - ALANINE AMINOTRANSFERASE INCREASED [None]
  - ANGINA PECTORIS [None]
  - ASPARTATE AMINOTRANSFERASE INCREASED [None]
  - ATRIAL FIBRILLATION [None]
  - BLOOD BILIRUBIN INCREASED [None]
  - CARDIOMEGALY [None]
  - CHOLELITHIASIS [None]
  - DIARRHOEA [None]
  - DYSPNOEA [None]
  - FATIGUE [None]
  - HAEMATOCRIT DECREASED [None]
  - HAEMOGLOBIN DECREASED [None]
  - HEART RATE IRREGULAR [None]
  - HEPATIC ENZYME INCREASED [None]
  - HEPATOMEGALY [None]
  - LUNG INJURY [None]
  - MYOCARDIAL ISCHAEMIA [None]
  - NAUSEA [None]
  - NEUTROPHIL COUNT DECREASED [None]
  - PERICARDIAL EFFUSION [None]
  - PLATELET COUNT DECREASED [None]
  - PNEUMONIA [None]
  - RENAL CYST [None]
  - VOMITING [None]
  - WHITE BLOOD CELL COUNT DECREASED [None]
